FAERS Safety Report 24973088 (Version 2)
Quarter: 2025Q1

REPORT INFORMATION
  Report Type: Spontaneous
  Country: US (occurrence: US)
  Receive Date: 20250216
  Receipt Date: 20250225
  Transmission Date: 20250408
  Serious: Yes (Death, Life-Threatening, Hospitalization, Other)
  Sender: GLENMARK
  Company Number: US-GLENMARK PHARMACEUTICALS-2025GMK097812

PATIENT
  Age: 56 Year
  Sex: Female

DRUGS (18)
  1. LINEZOLID [Suspect]
     Active Substance: LINEZOLID
     Indication: Escherichia infection
     Dosage: 600 MILLIGRAM, BID (600 MG EVERY 12 HOURS)
     Route: 048
  2. LINEZOLID [Suspect]
     Active Substance: LINEZOLID
     Indication: Enterococcal infection
  3. LINEZOLID [Suspect]
     Active Substance: LINEZOLID
     Indication: Escherichia infection
     Dosage: 600 MILLIGRAM, BID
     Route: 042
  4. LINEZOLID [Suspect]
     Active Substance: LINEZOLID
     Indication: Enterococcal infection
     Dosage: 600 MILLIGRAM, BID (ON DAY 37 OF LINEZOLID THERAPY)
     Route: 042
  5. LINEZOLID [Suspect]
     Active Substance: LINEZOLID
     Dosage: 600 MILLIGRAM, BID (ON DAY 41 OF LINEZOLID THERAPY)
     Route: 042
  6. METRONIDAZOLE [Concomitant]
     Active Substance: METRONIDAZOLE
     Indication: Escherichia infection
     Route: 065
  7. METRONIDAZOLE [Concomitant]
     Active Substance: METRONIDAZOLE
     Indication: Enterococcal infection
  8. CEFDINIR [Concomitant]
     Active Substance: CEFDINIR
     Indication: Escherichia infection
     Dosage: 300 MILLIGRAM, BID, 300 MG ORALLY EVERY 12 HOURS
     Route: 048
  9. CEFDINIR [Concomitant]
     Active Substance: CEFDINIR
     Indication: Enterococcal infection
  10. DAPTOMYCIN [Concomitant]
     Active Substance: DAPTOMYCIN
     Indication: Escherichia infection
     Route: 065
  11. DAPTOMYCIN [Concomitant]
     Active Substance: DAPTOMYCIN
     Indication: Sepsis
  12. DAPTOMYCIN [Concomitant]
     Active Substance: DAPTOMYCIN
     Indication: Enterococcal infection
  13. CEFTRIAXONE [Concomitant]
     Active Substance: CEFTRIAXONE
     Indication: Escherichia infection
     Route: 065
  14. CEFTRIAXONE [Concomitant]
     Active Substance: CEFTRIAXONE
     Indication: Enterococcal infection
  15. MEROPENEM [Concomitant]
     Active Substance: MEROPENEM
     Indication: Escherichia infection
     Dosage: 1 GRAM, TID,1 G IV EVERY 8 HOURS
     Route: 042
  16. MEROPENEM [Concomitant]
     Active Substance: MEROPENEM
     Indication: Enterococcal infection
  17. VASOPRESSIN [Concomitant]
     Active Substance: VASOPRESSIN
     Indication: Hypotension
     Route: 065
  18. NOREPINEPHRINE [Concomitant]
     Active Substance: NOREPINEPHRINE
     Indication: Hypotension
     Route: 065

REACTIONS (8)
  - Lactic acidosis [Fatal]
  - Shock [Fatal]
  - Pancreatitis acute [Fatal]
  - Hypoglycaemia [Unknown]
  - Incorrect product administration duration [Unknown]
  - Medication error in transfer of care [Unknown]
  - Nausea [Unknown]
  - Product use in unapproved indication [Unknown]
